FAERS Safety Report 7378965-8 (Version None)
Quarter: 2011Q1

REPORT INFORMATION
  Report Type: 
  Country: None (occurrence: None)
  Receive Date: 20110324
  Receipt Date: 20110324
  Transmission Date: 20110831
  Serious: No
  Sender: FDA-Public Use
  Company Number: None

PATIENT
  Age: 28 Year
  Sex: Male

DRUGS (4)
  1. TUBERCULIN NOS [Suspect]
     Dosage: ID/FOREARM
  2. CELEXA [Concomitant]
  3. M.V.I. [Concomitant]
  4. XANAX [Concomitant]

REACTIONS (2)
  - FLUSHING [None]
  - DYSPNOEA [None]
